FAERS Safety Report 7841934-5 (Version None)
Quarter: 2011Q4

REPORT INFORMATION
  Report Type: 
  Country: None (occurrence: None)
  Receive Date: 20111018
  Receipt Date: 20111004
  Transmission Date: 20120403
  Serious: Yes (Other)
  Sender: FDA-Public Use
  Company Number: 2010SP019898

PATIENT
  Age: 49 Year
  Sex: Female
  Weight: 79 kg

DRUGS (2)
  1. CLARITIN-D [Suspect]
     Indication: NASAL CONGESTION
     Dosage: 1 DF; ONCE; PO
     Route: 048
     Dates: start: 20080409
  2. CLARITIN-D [Suspect]
     Indication: HYPERSENSITIVITY
     Dosage: 1 DF; ONCE; PO
     Route: 048
     Dates: start: 20080409

REACTIONS (4)
  - EXFOLIATIVE RASH [None]
  - INSOMNIA [None]
  - MUSCLE SPASMS [None]
  - TACHYCARDIA [None]
